FAERS Safety Report 7245481-3 (Version None)
Quarter: 2011Q1

REPORT INFORMATION
  Report Type: 
  Country: None (occurrence: None)
  Receive Date: 20110126
  Receipt Date: 20110124
  Transmission Date: 20110831
  Serious: Yes (Hospitalization)
  Sender: FDA-Public Use
  Company Number: DE-SANOFI-AVENTIS-2010SA035880

PATIENT
  Age: 55 Year
  Sex: Female
  Weight: 56 kg

DRUGS (8)
  1. GRANISETRON HCL [Concomitant]
     Indication: PROPHYLAXIS
     Route: 042
     Dates: start: 20100616, end: 20100616
  2. DOCETAXEL [Suspect]
     Indication: BREAST CANCER
     Route: 041
     Dates: start: 20100616, end: 20100616
  3. DEXAMETHASONE [Concomitant]
     Route: 048
     Dates: start: 20100617, end: 20100617
  4. MESNA [Concomitant]
     Route: 048
     Dates: start: 20100616, end: 20100616
  5. CYCLOPHOSPHAMIDE [Suspect]
     Indication: BREAST CANCER
     Route: 041
     Dates: start: 20100616, end: 20100616
  6. MESNA [Concomitant]
     Indication: PROPHYLAXIS
     Route: 041
     Dates: start: 20100616, end: 20100616
  7. DEXAMETHASONE [Concomitant]
     Indication: PROPHYLAXIS
     Route: 048
     Dates: start: 20100615, end: 20100615
  8. DEXAMETHASONE [Concomitant]
     Route: 042
     Dates: start: 20100616, end: 20100616

REACTIONS (4)
  - NAUSEA [None]
  - PANCREATITIS ACUTE [None]
  - ABDOMINAL PAIN [None]
  - VOMITING [None]
